FAERS Safety Report 5824156-9 (Version None)
Quarter: 2008Q3

REPORT INFORMATION
  Report Type: 
  Country: None (occurrence: None)
  Receive Date: 20080728
  Receipt Date: 20080718
  Transmission Date: 20090109
  Serious: Yes (Other)
  Sender: FDA-Public Use
  Company Number: US-NOVOPROD-277672

PATIENT
  Sex: Male
  Weight: 76 kg

DRUGS (4)
  1. NOVOSEVEN [Suspect]
     Indication: LARGE INTESTINAL HAEMORRHAGE
     Dosage: 5670 UG, SINGLE
     Route: 042
     Dates: start: 20080715, end: 20080715
  2. NOVOSEVEN [Suspect]
     Indication: GASTROINTESTINAL HAEMORRHAGE
     Dosage: 5940 UG, SINGLE
     Route: 042
     Dates: start: 20080715, end: 20080715
  3. TRICOR                             /00090101/ [Concomitant]
     Indication: BLOOD CHOLESTEROL INCREASED
     Dosage: 1 TAB, QD
     Route: 048
  4. AMITRIPTYLINE HCL [Concomitant]
     Indication: NEUROPATHY PERIPHERAL
     Dosage: UNK, QD
     Route: 048

REACTIONS (3)
  - DRUG INEFFECTIVE [None]
  - INTERNATIONAL NORMALISED RATIO INCREASED [None]
  - PROTHROMBIN TIME PROLONGED [None]
